FAERS Safety Report 23038396 (Version 1)
Quarter: 2023Q4

REPORT INFORMATION
  Report Type: Spontaneous
  Country: CN (occurrence: CN)
  Receive Date: 20231006
  Receipt Date: 20231006
  Transmission Date: 20240110
  Serious: Yes (Hospitalization)
  Sender: FDA-Public Use
  Company Number: CN-MYLANLABS-2023M1104992

PATIENT
  Age: 74 Year
  Sex: Male

DRUGS (4)
  1. ATORVASTATIN [Suspect]
     Active Substance: ATORVASTATIN
     Indication: Vertebral artery occlusion
     Dosage: UNK
     Route: 048
  2. ATORVASTATIN [Suspect]
     Active Substance: ATORVASTATIN
     Indication: Prophylaxis
  3. ASPIRIN [Suspect]
     Active Substance: ASPIRIN
     Indication: Vertebral artery occlusion
     Dosage: UNK
     Route: 048
  4. CLOPIDOGREL [Suspect]
     Active Substance: CLOPIDOGREL BISULFATE
     Indication: Vertebral artery occlusion
     Dosage: UNK
     Route: 048

REACTIONS (1)
  - Drug ineffective [Unknown]
